FAERS Safety Report 6341685-2 (Version None)
Quarter: 2009Q3

REPORT INFORMATION
  Report Type: 
  Country: None (occurrence: None)
  Receive Date: 20090902
  Receipt Date: 20090902
  Transmission Date: 20100115
  Serious: Yes (Other)
  Sender: FDA-Public Use
  Company Number: None

PATIENT
  Age: 38 Year
  Sex: Female
  Weight: 56.6996 kg

DRUGS (2)
  1. MONISTAT 1 COMBINATION PACK [Suspect]
     Indication: FUNGAL INFECTION
     Dosage: ONE DOSE ONCE VAG
     Route: 067
     Dates: start: 20060105, end: 20060105
  2. ... [Concomitant]

REACTIONS (14)
  - DRUG DEPENDENCE [None]
  - DRUG INEFFECTIVE [None]
  - DYSPAREUNIA [None]
  - ECONOMIC PROBLEM [None]
  - EMOTIONAL DISORDER [None]
  - FUNGAL INFECTION [None]
  - HYPERAESTHESIA [None]
  - IMPAIRED WORK ABILITY [None]
  - IRRITABILITY [None]
  - SELF ESTEEM DECREASED [None]
  - SOMNOLENCE [None]
  - STRESS AT WORK [None]
  - VESTIBULITIS [None]
  - WEIGHT INCREASED [None]
